FAERS Safety Report 10268868 (Version 1)
Quarter: 2014Q2

REPORT INFORMATION
  Report Type: Spontaneous
  Country: ES (occurrence: ES)
  Receive Date: 20140630
  Receipt Date: 20140630
  Transmission Date: 20141212
  Serious: Yes (Hospitalization)
  Sender: FDA-Public Use
  Company Number: ES-GLAXOSMITHKLINE-B1008427A

PATIENT
  Age: 61 Year
  Sex: Female
  Weight: 60 kg

DRUGS (1)
  1. REVOLADE [Suspect]
     Indication: IMMUNE THROMBOCYTOPENIC PURPURA
     Dosage: 37.5MG TWICE PER DAY
     Route: 048
     Dates: start: 20130712, end: 20140523

REACTIONS (2)
  - Intracranial venous sinus thrombosis [Recovering/Resolving]
  - Headache [Recovering/Resolving]
